FAERS Safety Report 7174830-X (Version None)
Quarter: 2010Q4

REPORT INFORMATION
  Report Type: 
  Country: None (occurrence: None)
  Receive Date: 20101219
  Receipt Date: 20100426
  Transmission Date: 20110411
  Serious: Yes (Other)
  Sender: FDA-Public Use
  Company Number: US-AMGEN-QUU401053

PATIENT

DRUGS (3)
  1. ENBREL [Suspect]
     Indication: PSORIASIS
     Dosage: 50 MG, QWK
     Route: 058
     Dates: start: 20050211, end: 20100223
  2. ATORVASTATIN CALCIUM [Concomitant]
  3. TRAZODONE HCL [Concomitant]

REACTIONS (1)
  - MYELITIS [None]
